FAERS Safety Report 6517635-2 (Version None)
Quarter: 2009Q4

REPORT INFORMATION
  Report Type: 
  Country: None (occurrence: None)
  Receive Date: 20091224
  Receipt Date: 20091215
  Transmission Date: 20100525
  Serious: Yes (Hospitalization)
  Sender: FDA-Public Use
  Company Number: PHHO2009AU08807

PATIENT
  Sex: Male
  Weight: 83.4 kg

DRUGS (11)
  1. STI571/CGP57148B T35717+TAB [Suspect]
     Indication: CHRONIC MYELOID LEUKAEMIA
     Dosage: 600MG
     Route: 048
     Dates: start: 20090622
  2. METOPROLOL TARTRATE [Suspect]
     Dosage: UNK
     Dates: start: 20090716
  3. PERINDOPRIL [Concomitant]
     Indication: HYPERTENSION
  4. INDAPAMIDE W/PERINDOPRIL [Concomitant]
     Indication: HYPERTENSION
  5. FELODIPINE [Concomitant]
     Indication: HYPERTENSION
  6. ZANIDIP [Concomitant]
  7. PLAVIX [Concomitant]
  8. MOTILIUM [Concomitant]
  9. VITAMIN D [Concomitant]
  10. CALCIUM [Concomitant]
  11. ALLOPURINOL [Concomitant]

REACTIONS (26)
  - ABDOMINAL DISCOMFORT [None]
  - ABDOMINAL TENDERNESS [None]
  - ACUTE MYOCARDIAL INFARCTION [None]
  - ACUTE PULMONARY OEDEMA [None]
  - ANAEMIA [None]
  - ANGINA PECTORIS [None]
  - BREATH SOUNDS ABNORMAL [None]
  - CHEST DISCOMFORT [None]
  - CHEST PAIN [None]
  - CONCOMITANT DISEASE PROGRESSION [None]
  - CORONARY ARTERY DISEASE [None]
  - CORONARY ARTERY OCCLUSION [None]
  - CORONARY ARTERY STENOSIS [None]
  - COUGH [None]
  - CREPITATIONS [None]
  - DYSPNOEA [None]
  - GASTRITIS [None]
  - HEADACHE [None]
  - HYPERHIDROSIS [None]
  - LUNG CONSOLIDATION [None]
  - MALAISE [None]
  - MYOCARDIAL ISCHAEMIA [None]
  - PALPITATIONS [None]
  - PLEURAL EFFUSION [None]
  - RENAL IMPAIRMENT [None]
  - TROPONIN INCREASED [None]
